FAERS Safety Report 20070448 (Version 9)
Quarter: 2024Q1

REPORT INFORMATION
  Report Type: Spontaneous
  Country: US (occurrence: US)
  Receive Date: 20211115
  Receipt Date: 20240326
  Transmission Date: 20240410
  Serious: Yes (Hospitalization, Other)
  Sender: FDA-Public Use
  Company Number: US-PFIZER INC-202101146924

PATIENT
  Age: 77 Year
  Sex: Male

DRUGS (5)
  1. XELJANZ XR [Suspect]
     Active Substance: TOFACITINIB CITRATE
     Indication: Rheumatoid arthritis
     Dosage: 11 MG, DAILY
     Route: 048
     Dates: start: 201901
  2. XELJANZ XR [Suspect]
     Active Substance: TOFACITINIB CITRATE
     Dosage: 11 MG, DAILY
     Route: 048
     Dates: start: 20210901
  3. XELJANZ XR [Suspect]
     Active Substance: TOFACITINIB CITRATE
     Dosage: 11 MG, 1X/DAY
     Route: 048
     Dates: start: 2019
  4. PREDNISONE [Concomitant]
     Active Substance: PREDNISONE
     Indication: Pain in extremity
     Dosage: UNK
  5. PREDNISONE [Concomitant]
     Active Substance: PREDNISONE
     Indication: Arthralgia

REACTIONS (19)
  - Full blood count abnormal [Unknown]
  - Laboratory test abnormal [Unknown]
  - Sinusitis [Unknown]
  - Retinitis pigmentosa [Unknown]
  - Choking [Unknown]
  - Therapeutic product effect decreased [Unknown]
  - Peripheral swelling [Unknown]
  - Cardiac disorder [Unknown]
  - Increased appetite [Unknown]
  - Pain [Not Recovered/Not Resolved]
  - Gait disturbance [Unknown]
  - Dry mouth [Unknown]
  - Depression [Unknown]
  - Memory impairment [Unknown]
  - Sinus congestion [Unknown]
  - Fluid retention [Recovering/Resolving]
  - Product dose omission issue [Unknown]
  - Product dose omission in error [Unknown]
  - Intentional dose omission [Unknown]

NARRATIVE: CASE EVENT DATE: 20210101
